FAERS Safety Report 12429616 (Version 1)
Quarter: 2016Q2

REPORT INFORMATION
  Report Type: Spontaneous
  Country: US (occurrence: US)
  Receive Date: 20160602
  Receipt Date: 20160602
  Transmission Date: 20160815
  Serious: Yes (Other)
  Sender: FDA-Public Use
  Company Number: US-MDT-ADR-2016-00993

PATIENT
  Age: 21 Year
  Sex: Male

DRUGS (1)
  1. BACLOFEN. [Suspect]
     Active Substance: BACLOFEN
     Route: 037

REACTIONS (5)
  - Postoperative wound infection [Not Recovered/Not Resolved]
  - Medical device site fibrosis [Not Recovered/Not Resolved]
  - Medical device site infection [Not Recovered/Not Resolved]
  - Medical device site scar [Not Recovered/Not Resolved]
  - Complication associated with device [Not Recovered/Not Resolved]
